FAERS Safety Report 9922613 (Version 1)
Quarter: 2014Q1

REPORT INFORMATION
  Report Type: Report from Study
  Country: US (occurrence: US)
  Receive Date: 20140225
  Receipt Date: 20140225
  Transmission Date: 20141002
  Serious: Yes (Other)
  Sender: FDA-Public Use
  Company Number: US-TAKEDA-2014TUS001288

PATIENT
  Sex: 0

DRUGS (1)
  1. DEXILANT [Suspect]
     Dosage: UNK

REACTIONS (2)
  - Gallbladder non-functioning [Recovered/Resolved]
  - Cholelithiasis [Recovered/Resolved]
